FAERS Safety Report 7640953-1 (Version None)
Quarter: 2011Q3

REPORT INFORMATION
  Report Type: 
  Country: None (occurrence: None)
  Receive Date: 20110722
  Receipt Date: 20110706
  Transmission Date: 20111222
  Serious: Yes (Hospitalization, Other)
  Sender: FDA-Public Use
  Company Number: 2011MA008444

PATIENT
  Age: 39 Year
  Sex: Female

DRUGS (1)
  1. IBUPROFEN [Suspect]
     Indication: POLYARTHRITIS

REACTIONS (6)
  - PLEUROPERICARDITIS [None]
  - SYSTEMIC LUPUS ERYTHEMATOSUS [None]
  - HAEMOLYTIC ANAEMIA [None]
  - PLEURAL EFFUSION [None]
  - MENINGITIS ASEPTIC [None]
  - CONDITION AGGRAVATED [None]
